FAERS Safety Report 8037407-X (Version None)
Quarter: 2012Q1

REPORT INFORMATION
  Report Type: 
  Country: None (occurrence: None)
  Receive Date: 20120105
  Receipt Date: 20111228
  Transmission Date: 20120608
  Serious: Yes (Death, Life-Threatening, Hospitalization, Other)
  Sender: FDA-Public Use
  Company Number: 2011SP060038

PATIENT
  Age: 42 Year
  Sex: Male
  Weight: 84 kg

DRUGS (8)
  1. TEMODAL [Suspect]
     Indication: GLIOBLASTOMA MULTIFORME
     Dosage: 75 MG/M2;QD;PO 150 MG/M2;QD;PO
     Route: 048
     Dates: start: 20061128, end: 20061226
  2. TEMODAL [Suspect]
     Indication: GLIOBLASTOMA MULTIFORME
     Dosage: 75 MG/M2;QD;PO 150 MG/M2;QD;PO
     Route: 048
     Dates: start: 20070125, end: 20090518
  3. TEMODAL [Suspect]
     Indication: GLIOBLASTOMA MULTIFORME
     Dosage: 75 MG/M2;QD;PO 150 MG/M2;QD;PO
     Route: 048
     Dates: start: 20090928, end: 20100504
  4. TEMODAL [Suspect]
     Indication: GLIOBLASTOMA MULTIFORME
     Dosage: 75 MG/M2;QD;PO 150 MG/M2;QD;PO
     Route: 048
     Dates: start: 20100611, end: 20101005
  5. PHENYTOIN [Suspect]
     Indication: STATUS EPILEPTICUS
     Dosage: INDRP
     Route: 041
     Dates: start: 20090625
  6. KYTRIL /01178102/ [Concomitant]
  7. TEGRETOL [Suspect]
     Indication: STATUS EPILEPTICUS
     Dosage: PO
     Route: 048
     Dates: start: 20090625
  8. DEPAKENE [Suspect]
     Indication: EPILEPSY
     Dosage: PO
     Route: 048
     Dates: start: 20061111

REACTIONS (5)
  - DIARRHOEA [None]
  - DISEASE PROGRESSION [None]
  - STATUS EPILEPTICUS [None]
  - APPARENT LIFE THREATENING EVENT [None]
  - DRUG RASH WITH EOSINOPHILIA AND SYSTEMIC SYMPTOMS [None]
